FAERS Safety Report 11888203 (Version 1)
Quarter: 2016Q1

REPORT INFORMATION
  Report Type: Spontaneous
  Country: US (occurrence: None)
  Receive Date: 20160104
  Receipt Date: 20160104
  Transmission Date: 20160526
  Serious: No
  Sender: FDA-Public Use
  Company Number: None

PATIENT
  Age: 57 Year
  Sex: Male

DRUGS (5)
  1. ULORIC [Concomitant]
     Active Substance: FEBUXOSTAT
  2. MULTIVITAMIN [Concomitant]
     Active Substance: VITAMINS
  3. PROPECIA [Concomitant]
     Active Substance: FINASTERIDE
  4. DIOVAN [Concomitant]
     Active Substance: VALSARTAN
  5. SPRYCEL [Suspect]
     Active Substance: DASATINIB
     Indication: MYELOID LEUKAEMIA
     Route: 048
     Dates: start: 20130703

REACTIONS (3)
  - Oesophagitis [None]
  - Rash [None]
  - Pericarditis [None]
